FAERS Safety Report 4561056-9 (Version None)
Quarter: 2005Q1

REPORT INFORMATION
  Report Type: 
  Country: None (occurrence: None)
  Receive Date: 20050126
  Receipt Date: 20041011
  Transmission Date: 20050727
  Serious: No
  Sender: FDA-Public Use
  Company Number: US-BRISTOL-MYERS SQUIBB COMPANY-12728150

PATIENT
  Age: 48 Year
  Sex: Male
  Weight: 118 kg

DRUGS (4)
  1. GLUCOPHAGE [Suspect]
     Indication: DIABETES MELLITUS
     Dosage: INITAL DOSE: 500MG DAILY, CHANGED TO 1000MG DAILY ON 08-OCT-2004
     Route: 048
     Dates: start: 20041001
  2. LOPID [Concomitant]
     Dosage: DOSE INCREASED FROM 600MG DAILY TO 1200MG DAILY ON 01-OCT-2004
  3. VICODIN [Concomitant]
  4. DALMANE [Concomitant]

REACTIONS (2)
  - BACK PAIN [None]
  - POLLAKIURIA [None]
